FAERS Safety Report 11189376 (Version 1)
Quarter: 2015Q2

REPORT INFORMATION
  Report Type: Spontaneous
  Country: DO (occurrence: DO)
  Receive Date: 20150615
  Receipt Date: 20150615
  Transmission Date: 20150821
  Serious: Yes (Death)
  Sender: FDA-Public Use
  Company Number: DO-PFIZER INC-2015195478

PATIENT
  Age: 62 Year
  Sex: Male

DRUGS (1)
  1. SUTENT [Suspect]
     Active Substance: SUNITINIB MALATE
     Dosage: 12.5 MG, 1X/DAY
     Route: 048
     Dates: start: 20140416

REACTIONS (1)
  - Death [Fatal]
